FAERS Safety Report 8030251-9 (Version None)
Quarter: 2012Q1

REPORT INFORMATION
  Report Type: 
  Country: None (occurrence: None)
  Receive Date: 20120109
  Receipt Date: 20120103
  Transmission Date: 20120608
  Serious: No
  Sender: FDA-Public Use
  Company Number: PHHY2011FR105510

PATIENT
  Age: 66 Year
  Sex: Female
  Weight: 63 kg

DRUGS (8)
  1. LEVOTHYROXINE SODIUM [Concomitant]
  2. VALSARTAN [Concomitant]
  3. CLONAZEPAM [Concomitant]
  4. EFFEXOR [Concomitant]
  5. POTASSIUM CHLORIDE [Concomitant]
  6. VERATRAN [Concomitant]
  7. BISOPROLOL FUMARATE [Concomitant]
  8. TASIGNA [Suspect]
     Indication: CHRONIC MYELOID LEUKAEMIA
     Dosage: 400 MG, BID
     Route: 048
     Dates: start: 20111019

REACTIONS (4)
  - DRY SKIN [None]
  - RASH GENERALISED [None]
  - PRURITUS [None]
  - ALOPECIA [None]
